FAERS Safety Report 8399622-5 (Version None)
Quarter: 2012Q2

REPORT INFORMATION
  Report Type: 
  Country: None (occurrence: None)
  Receive Date: 20120323
  Receipt Date: 20110816
  Transmission Date: 20120825
  Serious: Yes (Hospitalization)
  Sender: FDA-Public Use
  Company Number: 163-21880-11072233

PATIENT
  Age: 66 Year
  Sex: Female

DRUGS (14)
  1. PNEUMOVAX (PNEUMOCOCCAL VACCINE) (UNKNOWN) [Concomitant]
  2. MILK OF MAGNESIA (MAGNESIUM HYDROXIDE) (UNKNOWN) [Concomitant]
  3. DULCOLAX [Concomitant]
  4. PRILOSEC (OMEPRAZOLE) (UNKNOWN) [Concomitant]
  5. AMBIEN [Concomitant]
  6. NEURONTIN [Concomitant]
  7. ZOFRAN [Concomitant]
  8. MIRALAX (MACROGOL) (UNKNOWN) [Concomitant]
  9. MYLANTA (MYLANTA) (UNKNOWN) [Concomitant]
  10. DECADRON [Concomitant]
  11. VELCADE [Concomitant]
  12. REVLIMID [Suspect]
     Indication: MULTIPLE MYELOMA
     Dosage: 25 MG, DAILY X 14 - REST ONE WEEK, PO 25 MG, DAILY X 14 - REST ONE WEEK, PO
     Route: 048
     Dates: start: 20110701
  13. REVLIMID [Suspect]
     Indication: MULTIPLE MYELOMA
     Dosage: 25 MG, DAILY X 14 - REST ONE WEEK, PO 25 MG, DAILY X 14 - REST ONE WEEK, PO
     Route: 048
     Dates: start: 20110621, end: 20110628
  14. MULTIVITAMIN (MULTIVITAMINS) (UNKNOWN) [Concomitant]

REACTIONS (2)
  - DISEASE PROGRESSION [None]
  - URINARY TRACT INFECTION [None]
